FAERS Safety Report 24238097 (Version 1)
Quarter: 2024Q3

REPORT INFORMATION
  Report Type: Spontaneous
  Country: US (occurrence: US)
  Receive Date: 20240822
  Receipt Date: 20240822
  Transmission Date: 20241016
  Serious: No
  Sender: B BRAUN
  Company Number: US-B.Braun Medical Inc.-2160728

PATIENT
  Age: 23 Year
  Sex: Female

DRUGS (1)
  1. BUPIVACAINE HYDROCHLORIDE [Suspect]
     Active Substance: BUPIVACAINE HYDROCHLORIDE
     Indication: Caesarean section

REACTIONS (2)
  - Anaesthetic complication [Unknown]
  - Maternal exposure during pregnancy [Unknown]
